FAERS Safety Report 4583507-6 (Version None)
Quarter: 2005Q1

REPORT INFORMATION
  Report Type: 
  Country: None (occurrence: None)
  Receive Date: 20050211
  Receipt Date: 20050129
  Transmission Date: 20050727
  Serious: Yes (Other)
  Sender: FDA-Public Use
  Company Number: 2004097604

PATIENT
  Age: 10 Year
  Sex: Female
  Weight: 45.3597 kg

DRUGS (2)
  1. GEODON [Suspect]
     Indication: OPPOSITIONAL DEFIANT DISORDER
     Dosage: 80 MG (80 MG, 1 IN 1 D), ORAL
     Route: 048
     Dates: start: 20031101
  2. BUPROPION HYDROCHLORIDE [Concomitant]

REACTIONS (2)
  - ABNORMAL BEHAVIOUR [None]
  - DIABETES MELLITUS INSULIN-DEPENDENT [None]
